FAERS Safety Report 4573467-6 (Version None)
Quarter: 2005Q1

REPORT INFORMATION
  Report Type: 
  Country: None (occurrence: None)
  Receive Date: 20050208
  Receipt Date: 20040824
  Transmission Date: 20050727
  Serious: No
  Sender: FDA-Public Use
  Company Number: US-GLAXOSMITHKLINE-A0523221A

PATIENT
  Sex: Male

DRUGS (1)
  1. PAXIL [Suspect]
     Route: 048

REACTIONS (9)
  - AGITATION [None]
  - BIPOLAR DISORDER [None]
  - CLAUSTROPHOBIA [None]
  - DEPRESSION [None]
  - DIARRHOEA [None]
  - HYPERACUSIS [None]
  - OVERDOSE [None]
  - PHOTOSENSITIVITY REACTION [None]
  - VOMITING [None]
